FAERS Safety Report 20151492 (Version 1)
Quarter: 2021Q4

REPORT INFORMATION
  Report Type: Spontaneous
  Country: US (occurrence: None)
  Receive Date: 20211203
  Receipt Date: 20211203
  Transmission Date: 20220303
  Serious: Yes (Death)
  Sender: FDA-Public Use
  Company Number: None

PATIENT
  Age: 82 Year
  Sex: Male
  Weight: 82.35 kg

DRUGS (15)
  1. DOCETAXEL [Suspect]
     Active Substance: DOCETAXEL
     Indication: Prostatic disorder
     Dosage: OTHER FREQUENCY : EVERY 21 DAYS;?
     Route: 042
     Dates: start: 20210325
  2. ACETAMINOPHEN [Concomitant]
     Active Substance: ACETAMINOPHEN
  3. ALLOPURINOL [Concomitant]
     Active Substance: ALLOPURINOL
  4. ALOXI [Concomitant]
     Active Substance: PALONOSETRON HYDROCHLORIDE
  5. DEXAMETHASONE [Concomitant]
     Active Substance: DEXAMETHASONE
  6. DOCUSATE [Concomitant]
     Active Substance: DOCUSATE
  7. DONEPEZIL [Concomitant]
     Active Substance: DONEPEZIL
  8. METOPROLOL [Concomitant]
     Active Substance: METOPROLOL
  9. MIRALAX [Concomitant]
     Active Substance: POLYETHYLENE GLYCOL 3350
  10. NEUTRA-PHOS [Concomitant]
     Active Substance: POTASSIUM PHOSPHATE, DIBASIC\POTASSIUM PHOSPHATE, MONOBASIC\SODIUM PHOSPHATE, DIBASIC\SODIUM PHOSPHA
  11. OXYCODONE [Concomitant]
     Active Substance: OXYCODONE
  12. PANTOPRAZOLE [Concomitant]
     Active Substance: PANTOPRAZOLE
  13. ROXICODONE [Concomitant]
     Active Substance: OXYCODONE HYDROCHLORIDE
  14. SENOKOT [Concomitant]
     Active Substance: SENNOSIDES
  15. SUCRALFATE [Concomitant]
     Active Substance: SUCRALFATE

REACTIONS (1)
  - Death [None]

NARRATIVE: CASE EVENT DATE: 20211203
